FAERS Safety Report 6810119-3 (Version None)
Quarter: 2010Q2

REPORT INFORMATION
  Report Type: 
  Country: None (occurrence: None)
  Receive Date: 20100630
  Receipt Date: 20100623
  Transmission Date: 20101027
  Serious: No
  Sender: FDA-Public Use
  Company Number: IT-WYE-H15215310

PATIENT
  Sex: Male
  Weight: 72 kg

DRUGS (1)
  1. REFACTO [Suspect]
     Indication: FACTOR VIII DEFICIENCY
     Dosage: 2000IU ON DEMAND (28IU/KG)
     Route: 042
     Dates: start: 20091021

REACTIONS (1)
  - FALSE POSITIVE LABORATORY RESULT [None]
